FAERS Safety Report 6362629-3 (Version None)
Quarter: 2009Q3

REPORT INFORMATION
  Report Type: 
  Country: None (occurrence: None)
  Receive Date: 20090919
  Receipt Date: 20090602
  Transmission Date: 20100115
  Serious: No
  Sender: FDA-Public Use
  Company Number: US-ABBOTT-09P-163-0578246-00

PATIENT
  Sex: Female
  Weight: 104.42 kg

DRUGS (34)
  1. HUMIRA [Suspect]
     Indication: RHEUMATOID ARTHRITIS
     Route: 058
     Dates: start: 20090526
  2. HUMALIN N INSULIN [Concomitant]
     Indication: DIABETES MELLITUS
  3. HUMALIN R INSULIN [Concomitant]
     Indication: DIABETES MELLITUS
  4. ALLEGRA [Concomitant]
     Indication: HYPERSENSITIVITY
  5. LISINOPRIL [Concomitant]
     Indication: BLOOD PRESSURE MANAGEMENT
  6. SPIRONOLACTONE [Concomitant]
     Indication: OEDEMA
  7. CYMBALTA [Concomitant]
     Indication: DEPRESSION
  8. CYMBALTA [Concomitant]
     Indication: AFFECTIVE DISORDER
  9. TRAZODONE [Concomitant]
     Indication: DEPRESSION
  10. TRAZODONE [Concomitant]
     Indication: AFFECTIVE DISORDER
  11. LAMICTAL [Concomitant]
     Indication: DEPRESSION
  12. LAMICTAL [Concomitant]
     Indication: AFFECTIVE DISORDER
  13. VALTREX [Concomitant]
     Indication: HERPES VIRUS INFECTION
  14. VICODIN [Concomitant]
     Indication: MIGRAINE
  15. OXYCODONE [Concomitant]
     Indication: BACK DISORDER
  16. OXYCODONE [Concomitant]
     Indication: RADICULOPATHY
  17. CYCLOBENZAPRINE [Concomitant]
     Indication: RHEUMATOID ARTHRITIS
  18. METHOTREXATE [Concomitant]
     Indication: RHEUMATOID ARTHRITIS
  19. FOLIC ACID [Concomitant]
     Indication: RHEUMATOID ARTHRITIS
  20. DIAZEPAM [Concomitant]
     Indication: RHEUMATOID ARTHRITIS
  21. HYDROXYZINE [Concomitant]
     Indication: PRURITUS
  22. PRILOSEC [Concomitant]
     Indication: PROPHYLAXIS AGAINST GASTROINTESTINAL ULCER
  23. VITAMIN D [Concomitant]
     Indication: RHEUMATOID ARTHRITIS
  24. CEPHALEXIN [Concomitant]
     Indication: FOLLICULITIS
  25. HYDROCORTISONE [Concomitant]
     Indication: FUNGAL INFECTION
  26. HYDROCORTISONE [Concomitant]
  27. UNKNOWN CREAM [Concomitant]
     Indication: DRUG USE FOR UNKNOWN INDICATION
  28. ONDANSETRON [Concomitant]
     Indication: NAUSEA
  29. ADVAIR HFA [Concomitant]
     Indication: WHEEZING
  30. ADVAIR HFA [Concomitant]
     Indication: DYSPNOEA
  31. ASPIRIN [Concomitant]
     Indication: BLOOD DISORDER
  32. MULTIVITAMIN WITH IRON AND CALCIUM [Concomitant]
     Indication: DRUG USE FOR UNKNOWN INDICATION
  33. MIRALAX [Concomitant]
     Indication: CONSTIPATION
  34. DOCUSATE SODIUM [Concomitant]
     Indication: DRUG USE FOR UNKNOWN INDICATION

REACTIONS (7)
  - BACK PAIN [None]
  - FATIGUE [None]
  - GAIT DISTURBANCE [None]
  - HEADACHE [None]
  - INJECTION SITE ANAESTHESIA [None]
  - TREMOR [None]
  - VOMITING [None]
